FAERS Safety Report 20806871 (Version 1)
Quarter: 2022Q2

REPORT INFORMATION
  Report Type: Spontaneous
  Country: DE (occurrence: DE)
  Receive Date: 20220510
  Receipt Date: 20220510
  Transmission Date: 20220720
  Serious: Yes (Other)
  Sender: FDA-Public Use
  Company Number: DE-NOVARTISPH-NVSC2022DE103742

PATIENT
  Sex: Male
  Weight: 55 kg

DRUGS (19)
  1. GEMCITABINE [Suspect]
     Active Substance: GEMCITABINE
     Indication: Diffuse large B-cell lymphoma
     Dosage: UNK (FOURTH LINE WITH GEMOX FOR THREE CYCLES, PROGRESSION OF DISEASE)
     Route: 065
     Dates: start: 201808, end: 201811
  2. ETOPOSIDE [Suspect]
     Active Substance: ETOPOSIDE
     Indication: Diffuse large B-cell lymphoma
     Dosage: UNK (SECOND LINE WITH RITUXIMAB AND ICE FOR TWO CYCLES)
     Route: 065
     Dates: start: 201606, end: 201707
  3. ETOPOSIDE [Suspect]
     Active Substance: ETOPOSIDE
     Dosage: UNK (FIFTH LINE WITH LEAM AS WELL AS ALLOGENEIC STEM CELL TRANSPLANTATION, PROGRESSION OF DISEASE)
     Route: 065
     Dates: start: 201812
  4. PREDNISONE [Suspect]
     Active Substance: PREDNISONE
     Indication: Diffuse large B-cell lymphoma
     Dosage: UNK (FIRST LINE WITH CHOP AND MTX, 6 CYCLES FROM MAY/2017 UNTIL SEP/207, PARTIAL REMISSION WAS TREAT
     Route: 065
     Dates: start: 201705, end: 201709
  5. CYCLOPHOSPHAMIDE [Suspect]
     Active Substance: CYCLOPHOSPHAMIDE
     Indication: Diffuse large B-cell lymphoma
     Dosage: UNK (FIRST LINE WITH CHOP AND MTX, 6 CYCLES FROM MAY/2017 UNTIL SEP/207, PARTIAL REMISSION WAS TREAT
     Route: 065
     Dates: start: 201705, end: 201709
  6. CISPLATIN [Suspect]
     Active Substance: CISPLATIN
     Indication: Diffuse large B-cell lymphoma
     Dosage: UNK (THIRD LINE WITH RITUXIMAB AND DHAP FOR ONE CYCLE,DIVERGENT)
     Route: 065
     Dates: start: 201807
  7. CARBOPLATIN [Suspect]
     Active Substance: CARBOPLATIN
     Indication: Diffuse large B-cell lymphoma
     Dosage: UNK (SECOND LINE WITH RITUXIMAB AND ICE FOR TWO CYCLES)
     Route: 065
     Dates: start: 201606, end: 201707
  8. RITUXIMAB [Suspect]
     Active Substance: RITUXIMAB
     Indication: Diffuse large B-cell lymphoma
     Dosage: UNK (SECOND LINE WITH RITUXIMAB AND ICE (IFOSFAMIDE, CARBOPLATIN, ETOPOSIDE) FOR TWO CYCLES)
     Route: 065
     Dates: start: 201606, end: 201707
  9. RITUXIMAB [Suspect]
     Active Substance: RITUXIMAB
     Dosage: UNK (FIRST LINE WITH CHOP AND MTX, 6 CYCLES FROM MAY/2017 UNTIL SEP/207, PARTIAL REMISSION WAS TREAT
     Route: 065
     Dates: start: 201705, end: 201709
  10. RITUXIMAB [Suspect]
     Active Substance: RITUXIMAB
     Dosage: UNK (THIRD LINE WITH RITUXIMAB AND DHAP FOR ONE CYCLE, DIVERGENT)
     Route: 065
     Dates: start: 201807
  11. OXALIPLATIN [Suspect]
     Active Substance: OXALIPLATIN
     Indication: Diffuse large B-cell lymphoma
     Dosage: UNK (FOURTH LINE WITH GEMOX FOR THREE CYCLES, PROGRESSION OF DISEASE)
     Route: 065
     Dates: start: 201808, end: 201811
  12. DEXAMETHASONE [Suspect]
     Active Substance: DEXAMETHASONE
     Indication: Diffuse large B-cell lymphoma
     Dosage: UNK (THIRD LINE WITH RITUXIMAB AND DHAP FOR ONE CYCLE, DIVERGENT)
     Route: 065
     Dates: start: 201807
  13. CYTARABINE [Suspect]
     Active Substance: CYTARABINE
     Indication: Diffuse large B-cell lymphoma
     Dosage: UNK (THIRD LINE WITH RITUXIMAB AND DHAP FOR ONE CYCLE,DIVERGENT)
     Route: 065
     Dates: start: 201807
  14. CYTARABINE [Suspect]
     Active Substance: CYTARABINE
     Dosage: UNK (FIFTH LINE WITH LEAM AS WELL AS ALLOGENEIC STEM CELL TRANSPLANTATION, PROGRESSION OF DISEASE)
     Route: 065
     Dates: start: 201812
  15. LOMUSTINE [Suspect]
     Active Substance: LOMUSTINE
     Indication: Diffuse large B-cell lymphoma
     Dosage: UNK (FIFTH LINE WITH LEAM AS WELL AS ALLOGENEIC STEM CELL TRANSPLANTATION, PROGRESSION OF DISEASE)
     Route: 065
     Dates: start: 201812
  16. VINCRISTINE [Suspect]
     Active Substance: VINCRISTINE
     Indication: Diffuse large B-cell lymphoma
     Dosage: UNK (FIRST LINE WITH CHOP AND MTX, 6 CYCLES FROM MAY/2017 UNTIL SEP/207, PARTIAL REMISSION WAS TREAT
     Route: 065
     Dates: start: 201705, end: 201709
  17. IFOSFAMIDE [Suspect]
     Active Substance: IFOSFAMIDE
     Indication: Diffuse large B-cell lymphoma
     Dosage: UNK (SECOND LINE WITH RITUXIMAB AND ICE FOR TWO CYCLES)
     Route: 065
     Dates: start: 201606, end: 201707
  18. MELPHALAN [Suspect]
     Active Substance: MELPHALAN
     Indication: Diffuse large B-cell lymphoma
     Dosage: UNK (FIFTH LINE WITH LEAM AS WELL AS ALLOGENEIC STEM CELL TRANSPLANTATION, PROGRESSION OF DISEASE)
     Route: 065
     Dates: start: 201812
  19. DOXORUBICIN [Suspect]
     Active Substance: DOXORUBICIN
     Indication: Diffuse large B-cell lymphoma
     Dosage: UNK (FIRST LINE WITH CHOP AND MTX, 6 CYCLES FROM MAY/2017 UNTIL SEP/207, PARTIAL REMISSION WAS TREAT
     Route: 065
     Dates: start: 201705, end: 201709

REACTIONS (1)
  - Graft versus host disease [Unknown]
